FAERS Safety Report 7442179-3 (Version None)
Quarter: 2011Q2

REPORT INFORMATION
  Report Type: 
  Country: None (occurrence: None)
  Receive Date: 20110428
  Receipt Date: 20110422
  Transmission Date: 20111010
  Serious: Yes (Death)
  Sender: FDA-Public Use
  Company Number: PHHY2011US35112

PATIENT
  Sex: Male
  Weight: 72.562 kg

DRUGS (13)
  1. EXJADE [Suspect]
     Dosage: 3 DF, DAILY AT NIGHT
     Route: 048
  2. UROXATRAL [Concomitant]
     Dosage: 10 MG, UNK
     Route: 048
  3. COLCHICINE [Concomitant]
  4. SUCRALFATE [Concomitant]
  5. ALPHAGAN P [Concomitant]
  6. AZOPT [Concomitant]
  7. METOPROLOL TARTRATE [Concomitant]
  8. NEXIUM [Concomitant]
  9. FINASTERIDE [Concomitant]
  10. HYDROXYUREA [Concomitant]
  11. KLOR-CON [Concomitant]
     Dosage: 8 DF, UNK
  12. TEMAZEPAM [Concomitant]
  13. SPRYCEL [Concomitant]

REACTIONS (1)
  - ACUTE LEUKAEMIA [None]
